FAERS Safety Report 8204523-9 (Version None)
Quarter: 2012Q1

REPORT INFORMATION
  Report Type: 
  Country: None (occurrence: None)
  Receive Date: 20120313
  Receipt Date: 20120312
  Transmission Date: 20120608
  Serious: Yes (Other)
  Sender: FDA-Public Use
  Company Number: US-PFIZER INC-2009222297

PATIENT
  Sex: Female
  Weight: 77.098 kg

DRUGS (4)
  1. CHANTIX [Suspect]
     Dosage: 0.5 MG, DAILY
     Dates: start: 20090101, end: 20090101
  2. HYDROCODONE [Concomitant]
     Indication: PAIN
     Dosage: 7.5 MG, UNK
  3. CHANTIX [Suspect]
     Dosage: UNK
     Dates: start: 20090101, end: 20090101
  4. CHANTIX [Suspect]
     Indication: SMOKING CESSATION THERAPY
     Dosage: UNK
     Dates: start: 20090519, end: 20090528

REACTIONS (13)
  - FLATULENCE [None]
  - NECK PAIN [None]
  - ARTHRALGIA [None]
  - DRUG CLEARANCE DECREASED [None]
  - DISTURBANCE IN ATTENTION [None]
  - ANXIETY [None]
  - NAUSEA [None]
  - ACTIVITIES OF DAILY LIVING IMPAIRED [None]
  - ABNORMAL DREAMS [None]
  - FORMICATION [None]
  - RESTLESSNESS [None]
  - DEPRESSION [None]
  - SLEEP DISORDER [None]
